FAERS Safety Report 17599633 (Version 1)
Quarter: 2020Q1

REPORT INFORMATION
  Report Type: Spontaneous
  Country: US (occurrence: US)
  Receive Date: 20200330
  Receipt Date: 20200330
  Transmission Date: 20200409
  Serious: Yes (Other)
  Sender: FDA-Public Use
  Company Number: US-HORIZON-DUE-0108-2020

PATIENT
  Sex: Male

DRUGS (1)
  1. DUEXIS [Suspect]
     Active Substance: FAMOTIDINE\IBUPROFEN
     Indication: PROCEDURAL PAIN
     Dosage: ONE TABLET EVERY 12 HOURS
     Dates: start: 2017

REACTIONS (3)
  - Off label use [Unknown]
  - Knee arthroplasty [Unknown]
  - Expired product administered [Unknown]

NARRATIVE: CASE EVENT DATE: 202003
